FAERS Safety Report 8093111-3 (Version None)
Quarter: 2012Q1

REPORT INFORMATION
  Report Type: 
  Country: None (occurrence: None)
  Receive Date: 20120128
  Receipt Date: 20110909
  Transmission Date: 20120608
  Serious: No
  Sender: FDA-Public Use
  Company Number: US-ABBOTT-11P-163-0849224-00

PATIENT
  Age: 62 Year
  Sex: Male

DRUGS (4)
  1. PROSCAR [Concomitant]
     Indication: PROSTATIC DISORDER
     Route: 048
  2. HUMIRA [Suspect]
     Dates: start: 20100801, end: 20110401
  3. HUMIRA [Suspect]
     Indication: PSORIATIC ARTHROPATHY
     Dates: start: 20080601, end: 20100701
  4. HUMIRA [Suspect]
     Dates: start: 20110501

REACTIONS (6)
  - HYPOAESTHESIA [None]
  - INJECTION SITE DISCOMFORT [None]
  - BLOOD PRESSURE INCREASED [None]
  - PARAESTHESIA [None]
  - TOOTH EXTRACTION [None]
  - DENTAL IMPLANTATION [None]
